FAERS Safety Report 5713272-8 (Version None)
Quarter: 2008Q2

REPORT INFORMATION
  Report Type: 
  Country: None (occurrence: None)
  Receive Date: 20080422
  Receipt Date: 20080414
  Transmission Date: 20081010
  Serious: Yes (Death)
  Sender: FDA-Public Use
  Company Number: DK-PFIZER INC-2004113965

PATIENT
  Sex: Female
  Weight: 66 kg

DRUGS (3)
  1. GENOTROPIN [Suspect]
     Indication: GROWTH HORMONE DEFICIENCY
     Route: 065
     Dates: start: 20020226, end: 20041006
  2. ELTROXIN [Concomitant]
  3. DESOGESTREL AND ETHINYL ESTRADIOL [Concomitant]

REACTIONS (1)
  - CORONARY ARTERY THROMBOSIS [None]
